FAERS Safety Report 24717995 (Version 1)
Quarter: 2024Q4

REPORT INFORMATION
  Report Type: Spontaneous
  Country: US (occurrence: None)
  Receive Date: 20241210
  Receipt Date: 20241210
  Transmission Date: 20250114
  Serious: No
  Sender: ACS DOBFAR
  Company Number: US-ACS-20240522

PATIENT
  Age: 60 Year
  Sex: Female
  Weight: 62 kg

DRUGS (21)
  1. CEFEPIME [Suspect]
     Active Substance: CEFEPIME HYDROCHLORIDE
     Indication: Sinusitis
     Dosage: ()
     Dates: start: 2024
  2. TYVASO [Suspect]
     Active Substance: TREPROSTINIL
     Indication: Pulmonary arterial hypertension
     Route: 055
     Dates: start: 20240916
  3. CLARITIN [Concomitant]
     Active Substance: LORATADINE
  4. SOLU-MEDROL [Suspect]
     Active Substance: METHYLPREDNISOLONE SODIUM SUCCINATE
  5. ADEMPAS [Concomitant]
     Active Substance: RIOCIGUAT
  6. RITUXAN [Concomitant]
     Active Substance: RITUXIMAB
  7. GAMMAGARD LIQUID [Suspect]
     Active Substance: HUMAN IMMUNOGLOBULIN G
  8. TYLENOL [Concomitant]
     Active Substance: ACETAMINOPHEN
  9. HYDROXYZINE HYDROCHLORIDE [Concomitant]
     Active Substance: HYDROXYZINE HYDROCHLORIDE
  10. LANSOPRAZOLE [Concomitant]
     Active Substance: LANSOPRAZOLE
  11. FLONASE ALLERGY RELIEF [Concomitant]
     Active Substance: FLUTICASONE PROPIONATE
  12. WINREVAIR [Concomitant]
     Active Substance: SOTATERCEPT-CSRK
     Dosage: ()
     Dates: start: 20241029, end: 20241029
  13. OXYGEN [Concomitant]
     Active Substance: OXYGEN
  14. FLUCONAZOLE [Concomitant]
     Active Substance: FLUCONAZOLE
  15. VITAMIN D3 [Concomitant]
     Active Substance: CHOLECALCIFEROL
  16. DIPHENHYDRAMINE HYDROCHLORIDE [Concomitant]
     Active Substance: DIPHENHYDRAMINE HYDROCHLORIDE
  17. DOXYCYCLINE HYCLATE [Concomitant]
     Active Substance: DOXYCYCLINE HYCLATE
  18. ROSUVASTATIN CALCIUM [Concomitant]
     Active Substance: ROSUVASTATIN CALCIUM
  19. LASIX [Concomitant]
     Active Substance: FUROSEMIDE
  20. CEFPODOXIME PROXETIL [Concomitant]
     Active Substance: CEFPODOXIME PROXETIL
  21. ONDANSETRON [Concomitant]
     Active Substance: ONDANSETRON
     Indication: Nausea

REACTIONS (1)
  - Headache [Recovered/Resolved]

NARRATIVE: CASE EVENT DATE: 20240101
